FAERS Safety Report 9820459 (Version 1)
Quarter: 2014Q1

REPORT INFORMATION
  Report Type: Spontaneous
  Country: US (occurrence: US)
  Receive Date: 20140116
  Receipt Date: 20140116
  Transmission Date: 20141002
  Serious: Yes (Other)
  Sender: FDA-Public Use
  Company Number: US-MYLANLABS-2014S1000522

PATIENT
  Age: 6 Year
  Sex: Male
  Weight: 18.14 kg

DRUGS (1)
  1. EPIPEN JR [Suspect]
     Indication: FOOD ALLERGY
     Route: 030
     Dates: start: 2007

REACTIONS (2)
  - Injury associated with device [Recovered/Resolved]
  - Injection site pain [Not Recovered/Not Resolved]
